FAERS Safety Report 19480960 (Version 2)
Quarter: 2021Q3

REPORT INFORMATION
  Report Type: Report from Study
  Country: None (occurrence: US)
  Receive Date: 20210630
  Receipt Date: 20210726
  Transmission Date: 20211014
  Serious: Yes (Hospitalization, Other)
  Sender: FDA-Public Use
  Company Number: US-ABBVIE-21K-163-3968560-00

PATIENT
  Age: 74 Year
  Sex: Female
  Weight: 107.14 kg

DRUGS (1)
  1. SKYRIZI [Suspect]
     Active Substance: RISANKIZUMAB-RZAA
     Indication: PSORIASIS
     Route: 058
     Dates: start: 2020

REACTIONS (2)
  - Osteoarthritis [Recovering/Resolving]
  - Overgrowth bacterial [Unknown]

NARRATIVE: CASE EVENT DATE: 202103
